FAERS Safety Report 6490517-0 (Version None)
Quarter: 2009Q4

REPORT INFORMATION
  Report Type: 
  Country: None (occurrence: None)
  Receive Date: 20091208
  Receipt Date: 20091124
  Transmission Date: 20100525
  Serious: Yes (Other)
  Sender: FDA-Public Use
  Company Number: 002520

PATIENT
  Age: 9 Year
  Sex: Female

DRUGS (2)
  1. LACOSAMIDE [Suspect]
     Dosage: (ORAL)
     Route: 048
  2. LEVETIRACETAM [Suspect]
     Dosage: (ORAL)
     Route: 048

REACTIONS (1)
  - STEVENS-JOHNSON SYNDROME [None]
